FAERS Safety Report 25719745 (Version 2)
Quarter: 2025Q3

REPORT INFORMATION
  Report Type: Spontaneous
  Country: US (occurrence: US)
  Receive Date: 20250825
  Receipt Date: 20250905
  Transmission Date: 20251020
  Serious: Yes (Death)
  Sender: AXSOME THERAPEUTICS
  Company Number: US-AXS-AXS202508-001442

PATIENT
  Age: 19 Year
  Sex: Male
  Weight: 77.11 kg

DRUGS (3)
  1. AUVELITY [Suspect]
     Active Substance: BUPROPION HYDROCHLORIDE\DEXTROMETHORPHAN HYDROBROMIDE
     Indication: Major depression
     Route: 048
     Dates: start: 20250522, end: 20250524
  2. AUVELITY [Suspect]
     Active Substance: BUPROPION HYDROCHLORIDE\DEXTROMETHORPHAN HYDROBROMIDE
     Route: 065
  3. AUVELITY [Suspect]
     Active Substance: BUPROPION HYDROCHLORIDE\DEXTROMETHORPHAN HYDROBROMIDE
     Dosage: RESTARTED SOMETIME FOLLOWING 19-JUN-2025 APPOINTMENT , PRIOR TO 17-JUL-2025.

REACTIONS (2)
  - Completed suicide [Fatal]
  - Treatment noncompliance [Unknown]

NARRATIVE: CASE EVENT DATE: 20250809
